FAERS Safety Report 6733038-X (Version None)
Quarter: 2010Q2

REPORT INFORMATION
  Report Type: 
  Country: None (occurrence: None)
  Receive Date: 20100517
  Receipt Date: 20100504
  Transmission Date: 20101027
  Serious: Yes (Hospitalization)
  Sender: FDA-Public Use
  Company Number: DSA_43104_2010

PATIENT
  Sex: Female

DRUGS (4)
  1. VOXRA            (VOXRA - BUPROPION HYDROCHLORIDE)      (150 MG, 300 M [Suspect]
     Indication: DEPRESSION
     Dosage: 150 MG QD, 300MG QD
     Dates: start: 20090701, end: 20091101
  2. VOXRA            (VOXRA - BUPROPION HYDROCHLORIDE)      (150 MG, 300 M [Suspect]
     Indication: DEPRESSION
     Dosage: 150 MG QD, 300MG QD
     Dates: start: 20091101
  3. SEROQUEL [Concomitant]
  4. LAMOTRIGUINE [Concomitant]

REACTIONS (5)
  - CONVULSION [None]
  - LOSS OF CONSCIOUSNESS [None]
  - MUSCULOSKELETAL STIFFNESS [None]
  - SYNCOPE [None]
  - UNRESPONSIVE TO STIMULI [None]
